FAERS Safety Report 15403524 (Version 5)
Quarter: 2020Q1

REPORT INFORMATION
  Report Type: Spontaneous
  Country: US (occurrence: US)
  Receive Date: 20180919
  Receipt Date: 20200116
  Transmission Date: 20200409
  Serious: Yes (Hospitalization)
  Sender: FDA-Public Use
  Company Number: US-SA-2018SA259488

PATIENT
  Age: 47 Year
  Sex: Male
  Weight: 97 kg

DRUGS (7)
  1. FABRAZYME [Suspect]
     Active Substance: AGALSIDASE BETA
     Dosage: 70 MG QOW
     Route: 041
     Dates: start: 200305
  2. CHLORTHALIDONE. [Suspect]
     Active Substance: CHLORTHALIDONE
     Dosage: UNK UNK, UNK
     Route: 065
  3. FABRAZYME [Suspect]
     Active Substance: AGALSIDASE BETA
     Indication: FABRY^S DISEASE
     Dosage: 70 MG, 125ML/HR
     Route: 041
     Dates: start: 20170203
  4. BENADRYL [Concomitant]
     Active Substance: DIPHENHYDRAMINE HYDROCHLORIDE
     Dosage: UNK UNK, PRN
     Route: 065
  5. ALLEGRA [Suspect]
     Active Substance: FEXOFENADINE HYDROCHLORIDE
     Dosage: UNK UNK, UNK
     Route: 065
  6. TYLENOL [Concomitant]
     Active Substance: ACETAMINOPHEN
     Indication: PROPHYLAXIS
     Dosage: 1000 MG, 4 HRS BEFORE AND AFTER INFUSION
     Route: 065
  7. ALLEGRA [Concomitant]
     Active Substance: FEXOFENADINE HYDROCHLORIDE
     Indication: PROPHYLAXIS
     Dosage: 60 MG, NIGHT BEFORE INFUSION
     Route: 065

REACTIONS (9)
  - Hyponatraemia [Unknown]
  - Feeling hot [Recovered/Resolved]
  - Unevaluable event [Unknown]
  - Nasopharyngitis [Recovering/Resolving]
  - Burning sensation [Unknown]
  - Weight decreased [Unknown]
  - Feeling hot [Unknown]
  - Upper respiratory tract infection [Recovering/Resolving]
  - Feeling hot [Recovering/Resolving]

NARRATIVE: CASE EVENT DATE: 201809
